FAERS Safety Report 16197127 (Version 10)
Quarter: 2021Q4

REPORT INFORMATION
  Report Type: Spontaneous
  Country: US (occurrence: US)
  Receive Date: 20190415
  Receipt Date: 20211210
  Transmission Date: 20220303
  Serious: Yes (Other)
  Sender: FDA-Public Use
  Company Number: US-PFIZER INC-2019154348

PATIENT
  Age: 77 Year
  Sex: Female

DRUGS (1)
  1. LYRICA [Suspect]
     Active Substance: PREGABALIN
     Dosage: UNK, 3X/DAY (SHE TAKES IT THREE TIMES A DAY )

REACTIONS (10)
  - Drug dependence [Unknown]
  - Drug ineffective [Unknown]
  - Withdrawal syndrome [Unknown]
  - Restlessness [Unknown]
  - Insomnia [Unknown]
  - Burning sensation [Not Recovered/Not Resolved]
  - Hypoacusis [Unknown]
  - Pain in extremity [Unknown]
  - Gait disturbance [Unknown]
  - Gout [Unknown]
